FAERS Safety Report 23255594 (Version 1)
Quarter: 2023Q4

REPORT INFORMATION
  Report Type: Spontaneous
  Country: US (occurrence: US)
  Receive Date: 20231203
  Receipt Date: 20231203
  Transmission Date: 20240110
  Serious: No
  Sender: FDA-Public Use
  Company Number: US-AVEO ONCOLOGY-2023-AVEO-US000747

PATIENT

DRUGS (7)
  1. FOTIVDA [Suspect]
     Active Substance: TIVOZANIB HYDROCHLORIDE
     Indication: Renal cell carcinoma
     Dosage: 1.34 MG, DAILY FOR 21 DAYS WITH 7 DAYS OFF (28-DAY CYCLE)
     Route: 048
     Dates: start: 20230403
  2. FOLIC ACID [Concomitant]
     Active Substance: FOLIC ACID
  3. POTASSIUM [Concomitant]
     Active Substance: POTASSIUM
  4. NIFEDIPINE [Concomitant]
     Active Substance: NIFEDIPINE
  5. DULOXETINE [Concomitant]
     Active Substance: DULOXETINE
  6. METOPROLOL [Concomitant]
     Active Substance: METOPROLOL
  7. COLCHICINE [Concomitant]
     Active Substance: COLCHICINE

REACTIONS (2)
  - Cardiac pacemaker insertion [Recovered/Resolved]
  - Complication associated with device [Unknown]

NARRATIVE: CASE EVENT DATE: 20230101
